FAERS Safety Report 6771033-5 (Version None)
Quarter: 2010Q2

REPORT INFORMATION
  Report Type: 
  Country: None (occurrence: None)
  Receive Date: 20100616
  Receipt Date: 20100602
  Transmission Date: 20101027
  Serious: Yes (Disabling, Other)
  Sender: FDA-Public Use
  Company Number: IT-RANBAXY-2010RR-34522

PATIENT
  Age: 17 Year
  Sex: Male

DRUGS (1)
  1. ISOTRETINOIN [Suspect]
     Dosage: 30 MG, QD
     Dates: start: 20071001

REACTIONS (2)
  - ACNE FULMINANS [None]
  - SACROILIITIS [None]
